FAERS Safety Report 8901654 (Version 1)
Quarter: 2012Q4

REPORT INFORMATION
  Report Type: Spontaneous
  Country: US (occurrence: None)
  Receive Date: 20121108
  Receipt Date: 20121108
  Transmission Date: 20130627
  Serious: Yes (Hospitalization)
  Sender: FDA-Public Use
  Company Number: None

PATIENT
  Age: 36 Year
  Sex: Male
  Weight: 80.5 kg

DRUGS (1)
  1. ROSUVASTATIN [Suspect]
     Dosage: 10 MG EVERY DAY PO
     Route: 048
     Dates: start: 20110707, end: 20111108

REACTIONS (4)
  - Muscular weakness [None]
  - Myalgia [None]
  - Gait disturbance [None]
  - Blood creatine phosphokinase increased [None]
